FAERS Safety Report 16956218 (Version 1)
Quarter: 2019Q4

REPORT INFORMATION
  Report Type: Spontaneous
  Country: US (occurrence: US)
  Receive Date: 20190904
  Receipt Date: 20190904
  Transmission Date: 20200122
  Serious: Yes (Death, Hospitalization)
  Sender: FDA-Public Use
  Company Number: None

PATIENT
  Age: 69 Year
  Sex: Female
  Weight: 58.1 kg

DRUGS (4)
  1. CYTARABINE. [Suspect]
     Active Substance: CYTARABINE
     Dates: end: 20190718
  2. ONCASPAR [Suspect]
     Active Substance: PEGASPARGASE
     Dates: end: 20190718
  3. METHOTREXATE. [Suspect]
     Active Substance: METHOTREXATE
     Dates: end: 20190715
  4. ETOPOSIDE (VP-16) [Suspect]
     Active Substance: ETOPOSIDE
     Dates: end: 20190718

REACTIONS (16)
  - Confusional state [None]
  - Acute kidney injury [None]
  - Oxygen saturation decreased [None]
  - Unresponsive to stimuli [None]
  - Decreased appetite [None]
  - Hypophagia [None]
  - Contusion [None]
  - Proteus test positive [None]
  - Acidosis [None]
  - Diarrhoea [None]
  - Fall [None]
  - Neutropenia [None]
  - General physical health deterioration [None]
  - Pain in extremity [None]
  - Disorientation [None]
  - Pulse absent [None]

NARRATIVE: CASE EVENT DATE: 20190730
